FAERS Safety Report 13659609 (Version 2)
Quarter: 2017Q3

REPORT INFORMATION
  Report Type: Report from Study
  Country: BR (occurrence: BR)
  Receive Date: 20170616
  Receipt Date: 20170921
  Transmission Date: 20171127
  Serious: Yes (Death, Other)
  Sender: FDA-Public Use
  Company Number: PHHY2017BR089093

PATIENT
  Sex: Female
  Weight: 47 kg

DRUGS (1)
  1. SANDOSTATIN LAR DEPOT [Suspect]
     Active Substance: OCTREOTIDE ACETATE
     Indication: NEUROENDOCRINE TUMOUR
     Dosage: 60 MG, UNK
     Route: 065

REACTIONS (3)
  - Diverticulitis [Unknown]
  - Cardiac arrest [Fatal]
  - Diverticular perforation [Unknown]
